FAERS Safety Report 22631167 (Version 1)
Quarter: 2023Q2

REPORT INFORMATION
  Report Type: Spontaneous
  Country: US (occurrence: US)
  Receive Date: 20230623
  Receipt Date: 20230623
  Transmission Date: 20230721
  Serious: Yes (Hospitalization)
  Sender: FDA-Public Use
  Company Number: US-STERISCIENCE B.V.-2023-ST-000179

PATIENT
  Age: 35 Year
  Sex: Male

DRUGS (10)
  1. MIDAZOLAM [Suspect]
     Active Substance: MIDAZOLAM
     Indication: General anaesthesia
     Dosage: 2 MILLIGRAM
  2. FENTANYL [Suspect]
     Active Substance: FENTANYL
     Indication: General anaesthesia
     Dosage: 100 MICROGRAM
  3. PROPOFOL [Suspect]
     Active Substance: PROPOFOL
     Indication: General anaesthesia
     Dosage: 50 MILLIGRAM
  4. ROCURONIUM [Suspect]
     Active Substance: ROCURONIUM BROMIDE
     Indication: General anaesthesia
     Dosage: 100 MILLIGRAM
  5. EPOPROSTENOL [Concomitant]
     Active Substance: EPOPROSTENOL
     Indication: Pulmonary arterial hypertension
     Dosage: 30 NANOGRAM PER KILOGRAM, QMINUTE
     Route: 042
  6. EPOPROSTENOL [Concomitant]
     Active Substance: EPOPROSTENOL
     Dosage: 10 NANOGRAM PER KILOGRAM, QMINUTE
     Route: 042
  7. EPOPROSTENOL [Concomitant]
     Active Substance: EPOPROSTENOL
     Dosage: GRADUALLY WAS INCREASED BACK TO 30 NANOGRAM PER KILOGRAM, QMINUTE
     Route: 042
  8. AMBRISENTAN [Concomitant]
     Active Substance: AMBRISENTAN
     Indication: Pulmonary arterial hypertension
     Dosage: UNK
  9. SILDENAFIL [Concomitant]
     Active Substance: SILDENAFIL
     Indication: Pulmonary arterial hypertension
     Dosage: UNK
  10. EPINEPHRINE [Concomitant]
     Active Substance: EPINEPHRINE
     Indication: Product used for unknown indication
     Dosage: BOLUSES

REACTIONS (1)
  - Hypotension [Recovered/Resolved]
